FAERS Safety Report 4360318-8 (Version None)
Quarter: 2004Q2

REPORT INFORMATION
  Report Type: 
  Country: None (occurrence: None)
  Receive Date: 20040514
  Receipt Date: 20040505
  Transmission Date: 20050107
  Serious: Yes (Hospitalization)
  Sender: FDA-Public Use
  Company Number: US-JNJFOC-20040101667

PATIENT
  Sex: Female

DRUGS (1)
  1. DITROPAN XL [Suspect]
     Dosage: 5 MG, 1 IN 1 DAY, ORAL
     Route: 048

REACTIONS (6)
  - BLADDER DISORDER [None]
  - DRUG INEFFECTIVE [None]
  - GASTRIC ULCER [None]
  - HAEMORRHAGE [None]
  - INSOMNIA [None]
  - PSYCHOMOTOR HYPERACTIVITY [None]
